FAERS Safety Report 11987126 (Version 1)
Quarter: 2016Q1

REPORT INFORMATION
  Report Type: Spontaneous
  Country: US (occurrence: None)
  Receive Date: 20160201
  Receipt Date: 20160201
  Transmission Date: 20160526
  Serious: No
  Sender: FDA-Public Use
  Company Number: None

PATIENT

DRUGS (4)
  1. ONDANSETRON ONDANSETRON AUROMEDICS PHARMA LLC [Suspect]
     Active Substance: ONDANSETRON
     Dosage: INJECTABLE, 4 MG/2 ML, SINGLE DOSE VIAL, 2 ML
  2. ONDANSETRON ONDANSETRON AUROMEDICS PHARMA LLC [Suspect]
     Active Substance: ONDANSETRON
     Dosage: INJECTABLE, I.V. OR I.M., 4 MG/2 ML, SINGLE DOSE VIAL, 2 ML
  3. PHENYLEPHRINE [Suspect]
     Active Substance: PHENYLEPHRINE\PHENYLEPHRINE HYDROCHLORIDE
  4. VAZCULEP [Suspect]
     Active Substance: PHENYLEPHRINE HYDROCHLORIDE

REACTIONS (1)
  - Product label confusion [None]
